FAERS Safety Report 7102031-X (Version None)
Quarter: 2010Q4

REPORT INFORMATION
  Report Type: 
  Country: None (occurrence: None)
  Receive Date: 20101115
  Receipt Date: 20101105
  Transmission Date: 20110411
  Serious: Yes (Hospitalization, Other)
  Sender: FDA-Public Use
  Company Number: US-ROCHE-732698

PATIENT
  Sex: Female
  Weight: 146 kg

DRUGS (2)
  1. HERCEPTIN [Suspect]
     Indication: BREAST CANCER
     Route: 042
     Dates: start: 20100205
  2. HERCEPTIN [Suspect]
     Route: 042
     Dates: start: 20100927

REACTIONS (6)
  - FATIGUE [None]
  - HEADACHE [None]
  - MALAISE [None]
  - PRODUCT QUALITY ISSUE [None]
  - SEPSIS [None]
  - WHITE BLOOD CELL COUNT INCREASED [None]
